FAERS Safety Report 5620616-4 (Version None)
Quarter: 2008Q1

REPORT INFORMATION
  Report Type: 
  Country: None (occurrence: None)
  Receive Date: 20080208
  Receipt Date: 20080131
  Transmission Date: 20080703
  Serious: Yes (Hospitalization)
  Sender: FDA-Public Use
  Company Number: DE-BAYER-200811812GPV

PATIENT
  Age: 47 Year
  Sex: Female

DRUGS (2)
  1. ASPIRIN [Suspect]
     Indication: DRUG USE FOR UNKNOWN INDICATION
     Route: 065
  2. AVELOX [Suspect]
     Indication: BRONCHITIS BACTERIAL
     Route: 048
     Dates: start: 20080109, end: 20080113

REACTIONS (1)
  - CONVULSION [None]
